FAERS Safety Report 8571903-1 (Version None)
Quarter: 2012Q3

REPORT INFORMATION
  Report Type: 
  Country: None (occurrence: None)
  Receive Date: 20120806
  Receipt Date: 20120801
  Transmission Date: 20120928
  Serious: Yes (Death, Hospitalization, Other)
  Sender: FDA-Public Use
  Company Number: US-JNJFOC-20120801246

PATIENT
  Sex: Female

DRUGS (10)
  1. NORGESTIMATE AND ETHINYL ESTRADIOL [Suspect]
     Indication: CONTRACEPTION
     Route: 065
  2. METOPROLOL TARTRATE [Concomitant]
     Route: 065
  3. CINRYZE [Suspect]
     Indication: HEREDITARY ANGIOEDEMA
     Route: 042
     Dates: start: 20120709
  4. FEXOFENADINE [Concomitant]
     Route: 065
  5. NORTRIPTYLINE HCL [Concomitant]
     Route: 065
  6. KLONOPIN [Concomitant]
     Route: 065
  7. CINRYZE [Suspect]
     Dosage: 1000 UNITS
     Route: 042
     Dates: start: 20091001
  8. OMEPRAZOLE [Concomitant]
     Route: 065
  9. CINRYZE [Suspect]
     Route: 042
     Dates: start: 20110801
  10. CELEXA [Concomitant]
     Route: 065

REACTIONS (11)
  - CARDIAC ARREST [None]
  - PULMONARY EMBOLISM [None]
  - SYNCOPE [None]
  - CEREBROVASCULAR ACCIDENT [None]
  - CONVULSION [None]
  - ANGIOEDEMA [None]
  - BUNDLE BRANCH BLOCK RIGHT [None]
  - HEMIPLEGIA [None]
  - ABDOMINAL DISTENSION [None]
  - PAIN [None]
  - NAUSEA [None]
